FAERS Safety Report 15936024 (Version 1)
Quarter: 2019Q1

REPORT INFORMATION
  Report Type: Spontaneous
  Country: CN (occurrence: CN)
  Receive Date: 20190208
  Receipt Date: 20190208
  Transmission Date: 20190417
  Serious: Yes (Hospitalization, Other)
  Sender: FDA-Public Use
  Company Number: CN-ROCHE-2257191

PATIENT
  Age: 40 Year
  Sex: Male

DRUGS (5)
  1. SULPERAZON [Concomitant]
     Active Substance: CEFOPERAZONE SODIUM\SULBACTAM SODIUM
     Indication: PNEUMONIA CYTOMEGALOVIRAL
  2. GANCICLOVIR. [Suspect]
     Active Substance: GANCICLOVIR
     Indication: PNEUMONIA CYTOMEGALOVIRAL
     Route: 065
  3. AMIKACIN. [Concomitant]
     Active Substance: AMIKACIN
     Indication: PNEUMONIA CYTOMEGALOVIRAL
  4. TAMIFLU [Suspect]
     Active Substance: OSELTAMIVIR PHOSPHATE
     Indication: PNEUMONIA CYTOMEGALOVIRAL
     Route: 065
  5. RIBAVIRIN. [Concomitant]
     Active Substance: RIBAVIRIN
     Indication: PNEUMONIA CYTOMEGALOVIRAL
     Route: 048

REACTIONS (4)
  - Pneumonia cytomegaloviral [Unknown]
  - Dyspnoea [Unknown]
  - Obliterative bronchiolitis [Unknown]
  - Condition aggravated [Unknown]
